FAERS Safety Report 7030676-4 (Version None)
Quarter: 2010Q4

REPORT INFORMATION
  Report Type: 
  Country: None (occurrence: None)
  Receive Date: 20101006
  Receipt Date: 20101006
  Transmission Date: 20110411
  Serious: Yes (Life-Threatening, Hospitalization)
  Sender: FDA-Public Use
  Company Number: US-PFIZER INC-2010104276

PATIENT
  Sex: Male
  Weight: 81 kg

DRUGS (16)
  1. BLINDED *NO SUBJECT DRUG [Suspect]
     Indication: CARDIAC FAILURE CONGESTIVE
     Dosage: 1X/DAY
     Route: 048
     Dates: start: 20080618, end: 20100808
  2. BLINDED *PLACEBO [Suspect]
     Indication: CARDIAC FAILURE CONGESTIVE
     Dosage: 1X/DAY
     Route: 048
     Dates: start: 20080618, end: 20100808
  3. BLINDED EPLERENONE [Suspect]
     Indication: CARDIAC FAILURE CONGESTIVE
     Dosage: 1X/DAY
     Route: 048
     Dates: start: 20080618, end: 20100808
  4. ALPRAZOLAM [Concomitant]
     Dosage: 0.25 MG, 1X/DAY
     Route: 048
     Dates: start: 20080425
  5. CALCITRIOL [Concomitant]
     Dosage: 0.25 MG, Q MON, WED, FRI
     Route: 048
     Dates: start: 20050414
  6. CARVEDILOL [Concomitant]
     Dosage: 12.5 MG, 1X/DAY
     Route: 048
     Dates: start: 20050414
  7. COLCHICINE [Concomitant]
     Dosage: 0.6 MG, 1X/DAY
     Route: 048
     Dates: start: 20080425
  8. VALSARTAN [Concomitant]
     Dosage: 160 MG, 1X/DAY
     Route: 048
     Dates: start: 20050414
  9. ERGOCALCIFEROL [Concomitant]
     Dosage: 50000 IU, MONTHLY
     Route: 048
     Dates: start: 20061013
  10. ISOSORBIDE [Concomitant]
     Dosage: 30 MG, 1X/DAY
     Route: 048
     Dates: start: 20061013
  11. LASIX [Concomitant]
     Dosage: 40 MG, 1X/DAY, MORNING
     Route: 048
     Dates: start: 20061008
  12. LEVOTHYROXINE [Concomitant]
     Dosage: 50 MG, UNK
     Route: 048
     Dates: start: 20061008
  13. MIRTAZAPINE [Concomitant]
     Dosage: 15 MG, 1X/DAY
     Route: 048
     Dates: start: 20080424
  14. SIMVASTATIN [Concomitant]
     Dosage: QHS
     Route: 048
     Dates: start: 20080414
  15. WARFARIN [Concomitant]
     Dosage: 0.5MG, AS DIRECTED
     Route: 048
     Dates: start: 20050414
  16. ZETIA [Concomitant]
     Dosage: 0.5 UG, UNK
     Route: 048
     Dates: start: 20061008

REACTIONS (5)
  - ACTIVATED PARTIAL THROMBOPLASTIN TIME PROLONGED [None]
  - BLOOD ALBUMIN DECREASED [None]
  - BLOOD CALCIUM DECREASED [None]
  - BLOOD CHLORIDE DECREASED [None]
  - RENAL FAILURE ACUTE [None]
